FAERS Safety Report 17119681 (Version 3)
Quarter: 2019Q4

REPORT INFORMATION
  Report Type: Spontaneous
  Country: ES (occurrence: ES)
  Receive Date: 20191206
  Receipt Date: 20191220
  Transmission Date: 20200122
  Serious: Yes (Hospitalization, Other)
  Sender: FDA-Public Use
  Company Number: ES-BIOGEN-2019BI00813343

PATIENT
  Age: 10 Year
  Sex: Female

DRUGS (1)
  1. SPINRAZA [Suspect]
     Active Substance: NUSINERSEN
     Indication: SPINAL MUSCULAR ATROPHY
     Dosage: 5ML/12 MG
     Route: 065
     Dates: start: 20190109

REACTIONS (4)
  - Pulmonary arteriopathy [Unknown]
  - Mediastinal mass [Unknown]
  - Scoliosis [Unknown]
  - Haemophilus test positive [Unknown]

NARRATIVE: CASE EVENT DATE: 20191012
